FAERS Safety Report 25522597 (Version 1)
Quarter: 2025Q3

REPORT INFORMATION
  Report Type: Spontaneous
  Country: JP (occurrence: JP)
  Receive Date: 20250707
  Receipt Date: 20250707
  Transmission Date: 20251020
  Serious: Yes (Other)
  Sender: SETON PHARMACEUTICALS
  Company Number: JP-SETONPHARMA-2025SETLIT00010

PATIENT
  Age: 41 Year
  Sex: Female
  Weight: 63 kg

DRUGS (6)
  1. PREDNISOLONE [Suspect]
     Active Substance: PREDNISOLONE
     Indication: Hemianopia
  2. PREDNISOLONE [Suspect]
     Active Substance: PREDNISOLONE
     Indication: Lymphocytic hypophysitis
  3. PREDNISOLONE [Suspect]
     Active Substance: PREDNISOLONE
  4. PREDNISOLONE [Suspect]
     Active Substance: PREDNISOLONE
  5. HYDROCORTISONE [Suspect]
     Active Substance: HYDROCORTISONE
     Indication: Lymphocytic hypophysitis
  6. HYDROCORTISONE [Suspect]
     Active Substance: HYDROCORTISONE

REACTIONS (1)
  - Graves^ disease [Recovered/Resolved]
